FAERS Safety Report 9492500 (Version 1)
Quarter: 2013Q3

REPORT INFORMATION
  Report Type: Spontaneous
  Country: GB (occurrence: GB)
  Receive Date: 20130830
  Receipt Date: 20130830
  Transmission Date: 20140515
  Serious: Yes (Other)
  Sender: FDA-Public Use
  Company Number: GB-UCBSA-096250

PATIENT
  Age: 43 Year
  Sex: Male

DRUGS (3)
  1. LEVETIRACETAM [Suspect]
  2. SODIUM VALPROATE [Concomitant]
  3. LAMOTRIGINE [Concomitant]

REACTIONS (2)
  - Aggression [Unknown]
  - Physical assault [Unknown]
